FAERS Safety Report 6923116-4 (Version None)
Quarter: 2010Q3

REPORT INFORMATION
  Report Type: 
  Country: None (occurrence: None)
  Receive Date: 20100811
  Receipt Date: 20100727
  Transmission Date: 20110219
  Serious: Yes (Hospitalization, Other)
  Sender: FDA-Public Use
  Company Number: 2010AP001562

PATIENT
  Age: 14 Year
  Sex: Female

DRUGS (2)
  1. RISPERIDONE [Suspect]
     Dosage: 1 MG;BID; 15 TAB;
  2. BUPROPION HYDROCHLORIDE [Suspect]
     Dosage: 150 MG;BID; 18 TAB;

REACTIONS (8)
  - CONVULSION [None]
  - DISORIENTATION [None]
  - DYSARTHRIA [None]
  - ELECTROCARDIOGRAM QT PROLONGED [None]
  - HEART RATE INCREASED [None]
  - NAUSEA [None]
  - OVERDOSE [None]
  - SOMNOLENCE [None]
